FAERS Safety Report 7282633-0 (Version None)
Quarter: 2011Q1

REPORT INFORMATION
  Report Type: 
  Country: None (occurrence: None)
  Receive Date: 20110209
  Receipt Date: 20110128
  Transmission Date: 20110831
  Serious: Yes (Other)
  Sender: FDA-Public Use
  Company Number: ES-ELI_LILLY_AND_COMPANY-ES201101007326

PATIENT
  Sex: Female
  Weight: 68 kg

DRUGS (5)
  1. ZALDIAR [Concomitant]
     Indication: PAIN
     Dosage: UNK, AS NEEDED
     Route: 048
  2. ZARATOR [Concomitant]
     Indication: HYPERLIPIDAEMIA
     Dosage: UNK, DAILY (1/D)
     Route: 048
  3. FORTEO [Suspect]
     Indication: OSTEOPOROSIS
     Dosage: 20 UG, DAILY (1/D)
     Route: 058
     Dates: start: 20091102, end: 20110115
  4. LYRICA [Concomitant]
     Indication: PAIN
     Dosage: UNK, 2/8H
     Route: 048
  5. OMEPRAZOLE [Concomitant]
     Indication: PROPHYLAXIS AGAINST GASTROINTESTINAL ULCER
     Dosage: UNK, DAILY (1/D)
     Route: 048

REACTIONS (1)
  - SPINAL CORD NEOPLASM [None]
